FAERS Safety Report 15813899 (Version 1)
Quarter: 2019Q1

REPORT INFORMATION
  Report Type: Spontaneous
  Country: CH (occurrence: CH)
  Receive Date: 20190111
  Receipt Date: 20190111
  Transmission Date: 20190417
  Serious: Yes (Hospitalization, Other)
  Sender: FDA-Public Use
  Company Number: CH-PFIZER INC-2019006677

PATIENT
  Age: 63 Year
  Sex: Female
  Weight: 63 kg

DRUGS (12)
  1. CIPRALEX [Concomitant]
     Active Substance: ESCITALOPRAM OXALATE
     Dosage: 10 MG, 2X/DAY
     Route: 048
  2. BETMIGA [Concomitant]
     Active Substance: MIRABEGRON
     Dosage: 50 MG, 1X/DAY
     Route: 048
  3. TEMESTA EXPIDET [Suspect]
     Active Substance: LORAZEPAM
     Indication: INSOMNIA
     Dosage: 0.5 MG, 1X/DAY
     Route: 048
     Dates: end: 20181208
  4. OXYGEN. [Suspect]
     Active Substance: OXYGEN
     Indication: RESPIRATORY DISTRESS
     Dosage: MINIMAL OXYGEN THERAPY
  5. CRESTOR [Concomitant]
     Active Substance: ROSUVASTATIN CALCIUM
     Dosage: 10 MG, 1X/DAY
     Route: 048
  6. TEMESTA EXPIDET [Suspect]
     Active Substance: LORAZEPAM
     Indication: PANIC ATTACK
  7. PANTOZOL [Concomitant]
     Active Substance: PANTOPRAZOLE SODIUM
     Dosage: 40 MG, 1X/DAY
     Route: 048
  8. OXYGEN. [Suspect]
     Active Substance: OXYGEN
     Indication: CLAUSTROPHOBIA
  9. OXYGEN. [Suspect]
     Active Substance: OXYGEN
     Indication: CHEST DISCOMFORT
  10. OXYGEN. [Suspect]
     Active Substance: OXYGEN
     Indication: AGITATION
  11. OXYGEN. [Suspect]
     Active Substance: OXYGEN
     Indication: PANIC ATTACK
  12. BELOC ZOK [Concomitant]
     Active Substance: METOPROLOL SUCCINATE
     Dosage: 12.5 MG, 2X/DAY
     Route: 048

REACTIONS (3)
  - Claustrophobia [Recovered/Resolved]
  - Respiratory distress [Recovered/Resolved]
  - Agitation [Recovered/Resolved]

NARRATIVE: CASE EVENT DATE: 20181206
